FAERS Safety Report 9236934 (Version 4)
Quarter: 2013Q4

REPORT INFORMATION
  Report Type: Report from Study
  Country: BR (occurrence: BR)
  Receive Date: 20130417
  Receipt Date: 20131028
  Transmission Date: 20140711
  Serious: Yes (Other)
  Sender: FDA-Public Use
  Company Number: PHHY2013BR035394

PATIENT
  Sex: Female

DRUGS (5)
  1. FORASEQ [Suspect]
     Indication: DYSPNOEA
     Dosage: 1 DF, BID
     Dates: start: 20130317, end: 20130423
  2. ONBREZ [Suspect]
     Indication: PULMONARY OEDEMA
     Dosage: UNK, QD
     Dates: start: 20130320
  3. ALENIA [Concomitant]
     Indication: PULMONARY OEDEMA
     Dosage: 2 DF, DAILY
  4. BAMIFIX [Concomitant]
     Dosage: 1 DF, DAILY
     Route: 048
  5. OMEPRAZOLE [Concomitant]
     Dosage: 2 DF, DAILY
     Route: 048

REACTIONS (5)
  - Lung disorder [Recovered/Resolved]
  - Anaemia [Recovered/Resolved]
  - Decreased appetite [Unknown]
  - Malaise [Unknown]
  - Dyspnoea [Recovered/Resolved]
